FAERS Safety Report 14044231 (Version 1)
Quarter: 2017Q4

REPORT INFORMATION
  Report Type: Spontaneous
  Country: FR (occurrence: FR)
  Receive Date: 20171004
  Receipt Date: 20171004
  Transmission Date: 20180321
  Serious: Yes (Other)
  Sender: FDA-Public Use
  Company Number: FR-MERCK KGAA-2028747

PATIENT
  Sex: Female

DRUGS (1)
  1. NOVOTHYROX [Suspect]
     Active Substance: LEVOTHYROXINE SODIUM
     Indication: POST PROCEDURAL HYPOTHYROIDISM

REACTIONS (9)
  - Depression [None]
  - Hyperhidrosis [None]
  - Arthropathy [None]
  - Arrhythmia [None]
  - Fatigue [None]
  - Hot flush [None]
  - Hypertension [None]
  - Irritability [None]
  - Headache [None]
